FAERS Safety Report 18775717 (Version 3)
Quarter: 2021Q1

REPORT INFORMATION
  Report Type: Report from Study
  Country: ES (occurrence: ES)
  Receive Date: 20210122
  Receipt Date: 20210218
  Transmission Date: 20210419
  Serious: Yes (Other)
  Sender: FDA-Public Use
  Company Number: ES-BAYER-2021-026903

PATIENT
  Sex: Male

DRUGS (2)
  1. METAMIZOLE [Interacting]
     Active Substance: METAMIZOLE
     Indication: COVID-19
     Dosage: UNK
  2. INTERFERON BETA?1B [Suspect]
     Active Substance: INTERFERON BETA-1B
     Indication: COVID-19
     Dosage: 0.25 MG, QOD
     Route: 058

REACTIONS (3)
  - Drug interaction [None]
  - Product use in unapproved indication [None]
  - Haematotoxicity [None]
